FAERS Safety Report 24090697 (Version 1)
Quarter: 2024Q3

REPORT INFORMATION
  Report Type: Spontaneous
  Country: US (occurrence: US)
  Receive Date: 20240715
  Receipt Date: 20240715
  Transmission Date: 20241016
  Serious: No
  Sender: Unknown Manufacturer
  Company Number: US-CYCLE PHARMACEUTICALS LTD-2024-CYC-000076

PATIENT

DRUGS (1)
  1. TASCENSO ODT [Suspect]
     Active Substance: FINGOLIMOD LAURYL SULFATE
     Indication: Multiple sclerosis
     Dosage: 0.5 MG, QD
     Route: 048
     Dates: start: 202309

REACTIONS (1)
  - Fall [Unknown]
